FAERS Safety Report 10768836 (Version 2)
Quarter: 2015Q1

REPORT INFORMATION
  Report Type: Spontaneous
  Country: FI (occurrence: FI)
  Receive Date: 20150206
  Receipt Date: 20150219
  Transmission Date: 20150721
  Serious: Yes (Life-Threatening)
  Sender: FDA-Public Use
  Company Number: FI-BAYER-2015-013613

PATIENT
  Age: 34 Year
  Sex: Female

DRUGS (3)
  1. BETAFERON [Suspect]
     Active Substance: INTERFERON BETA-1B
     Indication: MULTIPLE SCLEROSIS
     Dosage: 8 MIU, UNK
     Route: 058
     Dates: start: 200101, end: 200205
  2. NIZAX [Suspect]
     Active Substance: NIZATIDINE
     Indication: PROPHYLAXIS
     Dosage: 300 MG, DAILY DOSE
     Dates: start: 20020121
  3. BETAFERON [Suspect]
     Active Substance: INTERFERON BETA-1B
     Indication: MULTIPLE SCLEROSIS
     Dosage: 8 MIU EVERY OTHER DAY
     Dates: start: 200408, end: 20140221

REACTIONS (28)
  - Peripheral T-cell lymphoma unspecified [Recovered/Resolved]
  - Injection site reaction [None]
  - Urinary retention [None]
  - Paraesthesia [None]
  - Headache [None]
  - Abdominal pain upper [None]
  - Nausea [None]
  - Chills [Recovered/Resolved]
  - Pyrexia [Recovered/Resolved]
  - Migraine [None]
  - Basal cell carcinoma [None]
  - Lymphopenia [None]
  - Thrombocytopenia [Recovered/Resolved]
  - Optic neuritis [None]
  - Bruxism [None]
  - Leukopenia [Recovered/Resolved]
  - Night sweats [None]
  - Injection site atrophy [None]
  - White blood cell count decreased [None]
  - White blood cells urine positive [None]
  - Chest discomfort [None]
  - Palpitations [None]
  - Nuchal rigidity [None]
  - Bacterial test positive [None]
  - Otitis externa [None]
  - Visual acuity reduced [None]
  - Weight decreased [None]
  - Muscle rigidity [None]

NARRATIVE: CASE EVENT DATE: 2002
